FAERS Safety Report 4674263-1 (Version None)
Quarter: 2005Q2

REPORT INFORMATION
  Report Type: 
  Country: None (occurrence: None)
  Receive Date: 20050526
  Receipt Date: 20050518
  Transmission Date: 20051028
  Serious: Yes (Hospitalization, Other)
  Sender: FDA-Public Use
  Company Number: US-BRISTOL-MYERS SQUIBB COMPANY-12973384

PATIENT
  Age: 57 Year
  Sex: Female
  Weight: 77 kg

DRUGS (11)
  1. CETUXIMAB [Suspect]
     Indication: NON-SMALL CELL LUNG CANCER
     Route: 042
     Dates: start: 20050509, end: 20050509
  2. IRESSA [Suspect]
     Indication: NON-SMALL CELL LUNG CANCER
     Route: 048
     Dates: start: 20050509, end: 20050509
  3. ALBUTEROL [Concomitant]
  4. PREMARIN [Concomitant]
     Route: 048
  5. FOLIC ACID [Concomitant]
  6. NEXIUM [Concomitant]
  7. ASPIRIN [Concomitant]
  8. MULTIVITAMIN [Concomitant]
  9. HYOSCYAMINE [Concomitant]
  10. B12 [Concomitant]
     Dates: start: 20040101
  11. ARANESP [Concomitant]
     Dates: start: 20050415

REACTIONS (6)
  - CONFUSIONAL STATE [None]
  - HEADACHE [None]
  - MALIGNANT NEOPLASM PROGRESSION [None]
  - MUSCULOSKELETAL STIFFNESS [None]
  - NAUSEA [None]
  - PHOTOPHOBIA [None]
